FAERS Safety Report 8016804-2 (Version None)
Quarter: 2012Q1

REPORT INFORMATION
  Report Type: 
  Country: None (occurrence: None)
  Receive Date: 20120102
  Receipt Date: 20111229
  Transmission Date: 20120608
  Serious: Yes (Hospitalization)
  Sender: FDA-Public Use
  Company Number: FR-BRISTOL-MYERS SQUIBB COMPANY-16272379

PATIENT
  Age: 75 Year
  Sex: Male
  Weight: 59 kg

DRUGS (5)
  1. NECITUMUMAB [Suspect]
     Indication: NON-SMALL CELL LUNG CANCER
     Dosage: LIQUID
     Route: 065
  2. GEMCITABINE HYDROCHLORIDE [Suspect]
     Indication: NON-SMALL CELL LUNG CANCER
     Dosage: LAST DOSE ON 9NOV11
     Route: 065
  3. NEO-CODION [Concomitant]
     Dates: start: 20111031
  4. CISPLATIN [Suspect]
     Indication: NON-SMALL CELL LUNG CANCER
     Dosage: LAST DOSE ON 2NOV11
  5. ARANESP [Concomitant]
     Dates: start: 20111031

REACTIONS (1)
  - HEPATORENAL SYNDROME [None]
